FAERS Safety Report 7761146-3 (Version None)
Quarter: 2011Q3

REPORT INFORMATION
  Report Type: 
  Country: None (occurrence: None)
  Receive Date: 20110920
  Receipt Date: 20110906
  Transmission Date: 20111222
  Serious: Yes (Hospitalization)
  Sender: FDA-Public Use
  Company Number: GB-RANBAXY-2007RR-09510

PATIENT
  Age: 20 Year
  Sex: Female
  Weight: 40 kg

DRUGS (6)
  1. ACETAMINOPHEN [Suspect]
     Indication: TOOTHACHE
     Dosage: 225 MG/KG, UNK
     Route: 048
  2. ACETAMINPHEN AND CODEINE PHOSPHATE [Suspect]
     Indication: TOOTHACHE
     Dosage: 2 DF, UNK
     Route: 048
  3. IBUPROFEN TABLETS [Suspect]
     Indication: TOOTHACHE
     Dosage: 80 MG/KG, UNK
     Route: 048
  4. ADRENALIN IN OIL INJ [Concomitant]
     Indication: PULPITIS DENTAL
     Route: 065
  5. LIGNOCAINE HYDROCHLORIDE [Concomitant]
     Indication: PRODUCT USED FOR UNKNOWN INDICATION
     Dosage: 2 %, UNK
     Route: 065
  6. BUPIVACAINE HCL [Concomitant]
     Indication: PULPITIS DENTAL
     Dosage: 0.25 %, UNK
     Route: 065

REACTIONS (2)
  - ACCIDENTAL OVERDOSE [None]
  - TOXICITY TO VARIOUS AGENTS [None]
